APPROVED DRUG PRODUCT: ATENOLOL
Active Ingredient: ATENOLOL
Strength: 50MG
Dosage Form/Route: TABLET;ORAL
Application: A073352 | Product #001
Applicant: WATSON LABORATORIES INC
Approved: Dec 27, 1991 | RLD: No | RS: No | Type: DISCN